FAERS Safety Report 17434199 (Version 1)
Quarter: 2020Q1

REPORT INFORMATION
  Report Type: Spontaneous
  Country: US (occurrence: US)
  Receive Date: 20200203
  Receipt Date: 20200203
  Transmission Date: 20200409
  Serious: Yes (Other)
  Sender: FDA-Public Use
  Company Number: None

PATIENT
  Age: 41 Year
  Sex: Male
  Weight: 84 kg

DRUGS (9)
  1. NIVOLUMAB [Suspect]
     Active Substance: NIVOLUMAB
     Dosage: ?          OTHER FREQUENCY:Q4WEEKS;?
     Route: 042
     Dates: start: 20191003
  2. ACETAZOLAMIDE. [Concomitant]
     Active Substance: ACETAZOLAMIDE
  3. LEVOTHYROXINE. [Concomitant]
     Active Substance: LEVOTHYROXINE
  4. ACETAMINOPHEN. [Concomitant]
     Active Substance: ACETAMINOPHEN
  5. TESTOSTERONE. [Concomitant]
     Active Substance: TESTOSTERONE
  6. RELATLIMAB [Suspect]
     Active Substance: RELATLIMAB
     Dosage: ?          OTHER FREQUENCY:Q4WEEK;?
     Route: 042
  7. GABAPENTIN. [Concomitant]
     Active Substance: GABAPENTIN
  8. FINASTERIDE. [Concomitant]
     Active Substance: FINASTERIDE
  9. PREDNISONE. [Concomitant]
     Active Substance: PREDNISONE

REACTIONS (1)
  - Headache [None]

NARRATIVE: CASE EVENT DATE: 20200131
